FAERS Safety Report 8629159 (Version 3)
Quarter: 2014Q1

REPORT INFORMATION
  Report Type: Report from Study
  Country: CA (occurrence: CA)
  Receive Date: 20120621
  Receipt Date: 20140325
  Transmission Date: 20141002
  Serious: Yes (Hospitalization, Other)
  Sender: FDA-Public Use
  Company Number: CA-ROCHE-1079347

PATIENT
  Age: 53 Year
  Sex: Female
  Weight: 90.7 kg

DRUGS (20)
  1. RITUXAN [Suspect]
     Indication: RHEUMATOID ARTHRITIS
     Dosage: DOSE ON DAY 1, DAY 15, LAST INFUSION WAS ON 10/OCT/2013 PRIOR TO LUNG INFECTION
     Route: 042
     Dates: start: 20100909
  2. IMURAN [Concomitant]
  3. CIPRALEX [Concomitant]
  4. CLONAZEPAM [Concomitant]
  5. RANITIDINE [Concomitant]
  6. SYNTHROID [Concomitant]
  7. TYLENOL [Concomitant]
  8. VOLTAREN [Concomitant]
  9. MELATONIN [Concomitant]
  10. DIPHENHYDRAMINE HCL [Concomitant]
     Route: 048
     Dates: start: 20100909
  11. ACETAMINOPHEN [Concomitant]
     Route: 048
     Dates: start: 20100909
  12. METHYLPREDNISOLONE [Concomitant]
     Route: 042
     Dates: start: 20100909
  13. LAMOTRIGINE [Concomitant]
  14. LYRICA [Concomitant]
  15. WELLBUTRIN [Concomitant]
  16. LAMOTRIGINE [Concomitant]
  17. CYMBALTA [Concomitant]
  18. QUETIAPINE [Concomitant]
  19. MORPHINE [Concomitant]
  20. STATEX (CANADA) [Concomitant]

REACTIONS (5)
  - Stress [Unknown]
  - Pain [Unknown]
  - Lung infection [Not Recovered/Not Resolved]
  - Fibromyalgia [Not Recovered/Not Resolved]
  - Rheumatoid arthritis [Not Recovered/Not Resolved]
